FAERS Safety Report 15825856 (Version 3)
Quarter: 2019Q1

REPORT INFORMATION
  Report Type: Spontaneous
  Country: US (occurrence: US)
  Receive Date: 20190115
  Receipt Date: 20190219
  Transmission Date: 20190417
  Serious: No
  Sender: FDA-Public Use
  Company Number: US-PFIZER INC-2019015635

PATIENT
  Age: 60 Year
  Sex: Female

DRUGS (1)
  1. PREMARIN [Suspect]
     Active Substance: ESTROGENS, CONJUGATED
     Indication: DYSPAREUNIA
     Dosage: 0.625 MG, WEEKLY [ONCE A WEEK]
     Dates: start: 20181117, end: 20181222

REACTIONS (5)
  - Vulvovaginal burning sensation [Recovered/Resolved]
  - Vulvovaginal pain [Recovered/Resolved]
  - Nervousness [Recovered/Resolved]
  - Premenstrual syndrome [Recovered/Resolved]
  - Anxiety [Recovered/Resolved]

NARRATIVE: CASE EVENT DATE: 20181201
